FAERS Safety Report 9513560 (Version 4)
Quarter: 2013Q4

REPORT INFORMATION
  Report Type: Spontaneous
  Country: US (occurrence: US)
  Receive Date: 20130910
  Receipt Date: 20131227
  Transmission Date: 20140711
  Serious: Yes (Other)
  Sender: FDA-Public Use
  Company Number: US-MYLANLABS-2013S1019741

PATIENT
  Age: 51 Year
  Sex: Female
  Weight: 58.97 kg

DRUGS (8)
  1. CLONIDINE TRANSDERMAL SYSTEM [Suspect]
     Indication: BLOOD PRESSURE INCREASED
     Dosage: CHANGE PATCH EVERY WEEK
     Route: 062
     Dates: start: 20130719, end: 2013
  2. CLONIDINE TRANSDERMAL SYSTEM [Suspect]
     Indication: HYPERTENSION
     Dosage: CHANGE PATCH EVERY WEEK
     Route: 062
     Dates: start: 20130719, end: 2013
  3. CLONIDINE TRANSDERMAL SYSTEM [Suspect]
     Indication: BLOOD PRESSURE INCREASED
     Dosage: CHANGING THE PATCH EVERY WEEK
     Route: 062
     Dates: start: 2013, end: 20130914
  4. CLONIDINE TRANSDERMAL SYSTEM [Suspect]
     Indication: HYPERTENSION
     Dosage: CHANGING THE PATCH EVERY WEEK
     Route: 062
     Dates: start: 2013, end: 20130914
  5. CLONIDINE [Suspect]
     Indication: THERAPY CESSATION
     Dosage: TOOK 4 - 6 TABLETS PER 24 HOURS
     Route: 048
     Dates: start: 2013, end: 2013
  6. CLONIDINE [Suspect]
     Indication: HYPERTENSION
     Dosage: TOOK 4 - 6 TABLETS PER 24 HOURS
     Route: 048
     Dates: start: 2013, end: 2013
  7. CLONIDINE [Suspect]
     Indication: THERAPY CESSATION
     Dosage: TOOK 4 - 6 TABLETS PER 24 HOURS
     Route: 048
     Dates: start: 2013, end: 2013
  8. CLONIDINE [Suspect]
     Indication: HYPERTENSION
     Dosage: TOOK 4 - 6 TABLETS PER 24 HOURS
     Route: 048
     Dates: start: 2013, end: 2013

REACTIONS (9)
  - Drug effect decreased [Recovered/Resolved]
  - Drug dependence [Recovered/Resolved]
  - Blood pressure systolic increased [Recovered/Resolved]
  - Hypertension [Recovering/Resolving]
  - Feeling jittery [Recovered/Resolved]
  - Tremor [Recovered/Resolved]
  - Heart rate increased [Recovered/Resolved]
  - Burning sensation [Recovered/Resolved]
  - Adverse drug reaction [Recovered/Resolved]
